FAERS Safety Report 12849257 (Version 1)
Quarter: 2016Q4

REPORT INFORMATION
  Report Type: Report from Study
  Country: US (occurrence: US)
  Receive Date: 20161014
  Receipt Date: 20161014
  Transmission Date: 20170207
  Serious: Yes (Death)
  Sender: FDA-Public Use
  Company Number: US-PFIZER INC-2016478048

PATIENT

DRUGS (4)
  1. FOLIC ACID. [Concomitant]
     Active Substance: FOLIC ACID
     Dosage: 400 UG, DAILY
  2. PEMETREXED [Suspect]
     Active Substance: PEMETREXED
     Indication: TRANSITIONAL CELL CARCINOMA
     Dosage: 500 MG/M2, CYCLIC (OVER 10 MINUTES) DAY 1
     Route: 042
  3. VITAMIN B12 [Concomitant]
     Active Substance: CYANOCOBALAMIN
     Dosage: 1000 UG, EVERY 9 WEEKS
     Route: 030
  4. GEMCITABINE HYDROCHLORIDE. [Suspect]
     Active Substance: GEMCITABINE HYDROCHLORIDE
     Indication: TRANSITIONAL CELL CARCINOMA
     Dosage: 1000 MG/M2, CYCLIC  (OVER 30 MINUTES),DAY 1 AND DAY 8
     Route: 042

REACTIONS (1)
  - Neutropenic sepsis [Fatal]
